FAERS Safety Report 11783788 (Version 1)
Quarter: 2015Q4

REPORT INFORMATION
  Report Type: Spontaneous
  Country: IE (occurrence: IE)
  Receive Date: 20151127
  Receipt Date: 20151127
  Transmission Date: 20160305
  Serious: Yes (Hospitalization)
  Sender: FDA-Public Use
  Company Number: IE-009507513-1511IRL011707

PATIENT
  Age: 40 Year
  Sex: Female

DRUGS (4)
  1. CRINONE [Suspect]
     Active Substance: PROGESTERONE
     Indication: ASSISTED FERTILISATION
     Dosage: 1 PER NIGHT FOR 18 DAYS
     Dates: start: 20150303, end: 20150321
  2. GONAL-F [Suspect]
     Active Substance: FOLLITROPIN
     Indication: ASSISTED FERTILISATION
     Dosage: STRENGTH: 2.5 MICROGRAM/G 250 DF, QD
     Route: 058
     Dates: start: 20150219, end: 20150228
  3. PREGNYL [Suspect]
     Active Substance: CHORIOGONADOTROPIN ALFA
     Indication: ASSISTED FERTILISATION
     Dosage: UNK UNK, QD
     Route: 058
     Dates: start: 20150301
  4. SYNAREL [Suspect]
     Active Substance: NAFARELIN ACETATE
     Indication: ASSISTED FERTILISATION
     Dosage: 2 SNIFFS TWICE DAILY, BID
     Route: 045
     Dates: start: 20150203, end: 20150301

REACTIONS (6)
  - Abdominal pain [Recovered/Resolved]
  - Abdominal pain lower [Recovered/Resolved]
  - Ovarian cyst [Recovered/Resolved]
  - Diarrhoea [Recovered/Resolved]
  - Haemorrhage [Recovered/Resolved]
  - Ovarian cyst ruptured [Recovered/Resolved]

NARRATIVE: CASE EVENT DATE: 201503
